FAERS Safety Report 12420211 (Version 1)
Quarter: 2016Q2

REPORT INFORMATION
  Report Type: Spontaneous
  Country: GB (occurrence: GB)
  Receive Date: 20160531
  Receipt Date: 20160531
  Transmission Date: 20160815
  Serious: Yes (Other)
  Sender: FDA-Public Use
  Company Number: GB-DRREDDYS-GER/UKI/16/0080047

PATIENT
  Age: 44 Year
  Sex: Female
  Weight: 67.12 kg

DRUGS (1)
  1. CETIRIZINE HYDROCHLORIDE 10MG TABLETS, DR. REDDY^S [Suspect]
     Active Substance: CETIRIZINE HYDROCHLORIDE
     Indication: SEASONAL ALLERGY
     Route: 048
     Dates: start: 20160512, end: 20160513

REACTIONS (3)
  - Dry mouth [Recovered/Resolved]
  - Somnolence [Recovering/Resolving]
  - Epistaxis [Recovered/Resolved]

NARRATIVE: CASE EVENT DATE: 20160512
